FAERS Safety Report 12095511 (Version 3)
Quarter: 2016Q1

REPORT INFORMATION
  Report Type: Spontaneous
  Country: JP (occurrence: JP)
  Receive Date: 20160219
  Receipt Date: 20160329
  Transmission Date: 20160526
  Serious: Yes (Hospitalization, Other)
  Sender: FDA-Public Use
  Company Number: JP-BRISTOL-MYERS SQUIBB COMPANY-BMS-2015-017478

PATIENT
  Age: 83 Year
  Sex: Female

DRUGS (4)
  1. DAKLINZA [Suspect]
     Active Substance: DACLATASVIR
     Indication: CHRONIC HEPATITIS C
     Dosage: 60 MG, QD
     Route: 048
     Dates: start: 20141110, end: 20141222
  2. SUNVEPRA [Suspect]
     Active Substance: ASUNAPREVIR
     Indication: CHRONIC HEPATITIS C
     Dosage: 100 MG, BID
     Route: 048
     Dates: start: 20141110, end: 20141222
  3. FERROMIA [Concomitant]
     Active Substance: FERROUS CITRATE
     Indication: PRODUCT USED FOR UNKNOWN INDICATION
     Route: 065
  4. FEBURIC [Concomitant]
     Active Substance: FEBUXOSTAT
     Indication: PRODUCT USED FOR UNKNOWN INDICATION
     Route: 065

REACTIONS (6)
  - Prothrombin level decreased [Recovered/Resolved]
  - Eosinophil count increased [Unknown]
  - Hepatic function abnormal [Recovered/Resolved]
  - Blood albumin abnormal [Unknown]
  - Oedema [Not Recovered/Not Resolved]
  - Ascites [Recovered/Resolved]

NARRATIVE: CASE EVENT DATE: 20141222
